FAERS Safety Report 22356587 (Version 1)
Quarter: 2023Q2

REPORT INFORMATION
  Report Type: Spontaneous
  Country: FR (occurrence: FR)
  Receive Date: 20230523
  Receipt Date: 20230523
  Transmission Date: 20230722
  Serious: Yes (Death)
  Sender: FDA-Public Use
  Company Number: None

PATIENT
  Age: 85 Year
  Sex: Female
  Weight: 63 kg

DRUGS (3)
  1. IBRANCE [Suspect]
     Active Substance: PALBOCICLIB
     Indication: Breast cancer
     Dosage: 1 DF, 1X/DAY
     Route: 048
     Dates: start: 20220527, end: 20220816
  2. XELODA [Concomitant]
     Active Substance: CAPECITABINE
     Indication: Breast cancer
     Dosage: 2000 MG, 2X/DAY (AT 10.00 AM AND 10.00 PM) AFTER A SNACK, 14 DAYS ON 21 DAYS
     Route: 048
     Dates: start: 20220823
  3. SODIUM ALGINATE\SODIUM BICARBONATE [Concomitant]
     Active Substance: SODIUM ALGINATE\SODIUM BICARBONATE
     Dosage: UNK, 3X/DAY (AT 08.00 AM, NOON, AND 08.00 PM)

REACTIONS (6)
  - Death [Fatal]
  - Dizziness [Recovered/Resolved]
  - Fatigue [Not Recovered/Not Resolved]
  - Decreased appetite [Not Recovered/Not Resolved]
  - Rash papular [Recovered/Resolved]
  - Dysgeusia [Not Recovered/Not Resolved]

NARRATIVE: CASE EVENT DATE: 20220608
